FAERS Safety Report 17590228 (Version 1)
Quarter: 2020Q1

REPORT INFORMATION
  Report Type: Spontaneous
  Country: BR (occurrence: BR)
  Receive Date: 20200327
  Receipt Date: 20200327
  Transmission Date: 20200409
  Serious: Yes (Other)
  Sender: FDA-Public Use
  Company Number: BR-MYLANLABS-2020M1032044

PATIENT
  Age: 83 Year
  Sex: Male
  Weight: 62 kg

DRUGS (9)
  1. PISA                               /01356402/ [Concomitant]
     Dosage: 4 YEARS AGO
  2. DUTASTERIDE. [Concomitant]
     Active Substance: DUTASTERIDE
     Dosage: 10 YEARS AGO
  3. FRONTAL XR [Suspect]
     Active Substance: ALPRAZOLAM
     Indication: PARKINSON^S DISEASE
     Dosage: 2 MILLIGRAM, BID
     Route: 048
     Dates: end: 2019
  4. FRONTAL XR [Suspect]
     Active Substance: ALPRAZOLAM
     Dosage: 3 MILLIGRAM, QD(2MG IN MORNING;1 MG IN NIGHT)
     Route: 048
     Dates: start: 2019, end: 2019
  5. CLOZAPINE. [Suspect]
     Active Substance: CLOZAPINE
     Indication: PRODUCT USED FOR UNKNOWN INDICATION
     Dosage: UNK
  6. PROLOPA [Concomitant]
     Active Substance: BENSERAZIDE\LEVODOPA
     Dosage: STARTED 4 YERAS AGO
  7. FRONTAL XR [Suspect]
     Active Substance: ALPRAZOLAM
     Dosage: 2 MILLIGRAM, QD (1 TABLET IN MORNING; 1 IN NIGHT)
     Route: 048
     Dates: start: 2019
  8. LOSARTAN. [Concomitant]
     Active Substance: LOSARTAN
     Dosage: 4-5 YEARS AGO
  9. FINASTERIDE. [Concomitant]
     Active Substance: FINASTERIDE
     Dosage: 10 YEARS AGO

REACTIONS (7)
  - Cough [Not Recovered/Not Resolved]
  - Parkinson^s disease [Unknown]
  - Feeling abnormal [Not Recovered/Not Resolved]
  - Dysuria [Not Recovered/Not Resolved]
  - Aspiration [Recovered/Resolved]
  - Drug dependence [Not Recovered/Not Resolved]
  - Peripheral swelling [Not Recovered/Not Resolved]

NARRATIVE: CASE EVENT DATE: 2019
